FAERS Safety Report 9708203 (Version 1)
Quarter: 2013Q4

REPORT INFORMATION
  Report Type: Spontaneous
  Country: US (occurrence: None)
  Receive Date: 20131122
  Receipt Date: 20131122
  Transmission Date: 20140711
  Serious: Yes (Hospitalization)
  Sender: FDA-Public Use
  Company Number: None

PATIENT
  Age: 61 Year
  Sex: Male
  Weight: 93.2 kg

DRUGS (2)
  1. ALEMTUZUMAB [Suspect]
     Indication: CHRONIC LYMPHOCYTIC LEUKAEMIA RECURRENT
     Route: 042
     Dates: start: 20130515, end: 20130918
  2. ALEMTUZUMAB [Suspect]
     Indication: CHRONIC LYMPHOCYTIC LEUKAEMIA REFRACTORY
     Route: 042
     Dates: start: 20130515, end: 20130918

REACTIONS (8)
  - Injection site erythema [None]
  - Chills [None]
  - Blood pressure increased [None]
  - Heart rate increased [None]
  - Vomiting [None]
  - Local swelling [None]
  - Respiratory rate increased [None]
  - Infusion related reaction [None]
